FAERS Safety Report 15759008 (Version 2)
Quarter: 2018Q4

REPORT INFORMATION
  Report Type: Report from Study
  Country: None (occurrence: NL)
  Receive Date: 20181226
  Receipt Date: 20181227
  Transmission Date: 20190205
  Serious: Yes (Hospitalization)
  Sender: FDA-Public Use
  Company Number: NL-ABBVIE-16K-114-1777702-00

PATIENT
  Sex: Male
  Weight: 61 kg

DRUGS (6)
  1. DUODOPA [Suspect]
     Active Substance: CARBIDOPA\LEVODOPA
     Dosage: MD REDUCED WITH 1.0ML AND CD REDUCED WITH 0.3ML
     Route: 050
     Dates: start: 201701, end: 201701
  2. DUODOPA [Suspect]
     Active Substance: CARBIDOPA\LEVODOPA
     Dosage: CONTINUOUS DOSE IS INCREASED WITH 0.2ML
     Route: 050
     Dates: start: 201701
  3. DUODOPA [Suspect]
     Active Substance: CARBIDOPA\LEVODOPA
     Indication: PARKINSON^S DISEASE
     Dosage: MD:  8.5   CD:  3.2     ED: 3.5
     Route: 050
     Dates: start: 20161026, end: 201701
  4. DUODOPA [Suspect]
     Active Substance: CARBIDOPA\LEVODOPA
     Dosage: MD REDUCED BY 1.0 ML AND THE CD REDUCED BY 0.3 ML
     Route: 050
  5. DUODOPA [Suspect]
     Active Substance: CARBIDOPA\LEVODOPA
     Dosage: ED 3 TIMES A DAY, CD INCREASED WITH 0.1ML
     Route: 050
  6. DUODOPA [Suspect]
     Active Substance: CARBIDOPA\LEVODOPA
     Dosage: MORNING DOSE:  811.5   CONTINUOUS DOSE:  3.3     EXTRA DOSE: 4
     Route: 050

REACTIONS (29)
  - Muscular weakness [Unknown]
  - Unintentional medical device removal [Unknown]
  - On and off phenomenon [Recovered/Resolved]
  - Cystitis [Not Recovered/Not Resolved]
  - Dystonia [Not Recovered/Not Resolved]
  - Freezing phenomenon [Recovered/Resolved]
  - Accidental overdose [Not Recovered/Not Resolved]
  - Balance disorder [Not Recovered/Not Resolved]
  - Restlessness [Not Recovered/Not Resolved]
  - Abnormal dreams [Recovered/Resolved]
  - Restlessness [Recovered/Resolved]
  - Drug effect delayed [Not Recovered/Not Resolved]
  - Dyskinesia [Not Recovered/Not Resolved]
  - Hyperkinesia [Not Recovered/Not Resolved]
  - Pneumonia [Not Recovered/Not Resolved]
  - Fatigue [Not Recovered/Not Resolved]
  - Speech disorder [Not Recovered/Not Resolved]
  - Gait disturbance [Not Recovered/Not Resolved]
  - On and off phenomenon [Not Recovered/Not Resolved]
  - Hypokinesia [Recovered/Resolved]
  - On and off phenomenon [Unknown]
  - Drug effect incomplete [Unknown]
  - Inappropriate schedule of product administration [Unknown]
  - Dysstasia [Not Recovered/Not Resolved]
  - Posture abnormal [Not Recovered/Not Resolved]
  - Emotional disorder [Not Recovered/Not Resolved]
  - Dyspnoea [Not Recovered/Not Resolved]
  - Confusional state [Not Recovered/Not Resolved]
  - Motor dysfunction [Not Recovered/Not Resolved]

NARRATIVE: CASE EVENT DATE: 2016
